FAERS Safety Report 8076738-4 (Version None)
Quarter: 2012Q1

REPORT INFORMATION
  Report Type: 
  Country: None (occurrence: None)
  Receive Date: 20120127
  Receipt Date: 20120119
  Transmission Date: 20120608
  Serious: Yes (Disabling, Other)
  Sender: FDA-Public Use
  Company Number: GB-B.I. PHARMACEUTICALS,INC./RIDGEFIELD-2012-UK-00062UK

PATIENT
  Age: 69 Year
  Sex: Male

DRUGS (3)
  1. CALCIUM CARBONATE [Concomitant]
     Dates: start: 20111007, end: 20111206
  2. PRADAXA [Suspect]
  3. PREDNISOLONE [Concomitant]
     Dates: start: 20111007, end: 20111202

REACTIONS (2)
  - VOMITING [None]
  - ABDOMINAL PAIN [None]
